FAERS Safety Report 21799775 (Version 1)
Quarter: 2022Q4

REPORT INFORMATION
  Report Type: Spontaneous
  Country: US (occurrence: None)
  Receive Date: 20221229
  Receipt Date: 20221229
  Transmission Date: 20230112
  Serious: Yes (Other)
  Sender: FDA-Public Use
  Company Number: None

PATIENT
  Age: 59 Year
  Sex: Male
  Weight: 87.54 kg

DRUGS (22)
  1. BUPRENORPHINE SUBLINGUAL [Suspect]
     Active Substance: BUPRENORPHINE HYDROCHLORIDE
     Indication: Pain
     Dates: start: 20221221, end: 20221222
  2. BIKTARVY [Concomitant]
     Active Substance: BICTEGRAVIR SODIUM\EMTRICITABINE\TENOFOVIR ALAFENAMIDE FUMARATE
  3. LIPITOR [Concomitant]
     Active Substance: ATORVASTATIN CALCIUM
  4. LOTENSIN [Concomitant]
     Active Substance: BENAZEPRIL HYDROCHLORIDE
  5. ASPIRIN [Concomitant]
     Active Substance: ASPIRIN
  6. IBUPROFEN [Concomitant]
     Active Substance: IBUPROFEN
  7. LYRICA [Concomitant]
     Active Substance: PREGABALIN
  8. PERCOCEET [Concomitant]
  9. HEARING AIDS [Concomitant]
  10. READING GLASSES [Concomitant]
  11. DICLOFENAC [Concomitant]
     Active Substance: DICLOFENAC
  12. ESTER C [Concomitant]
  13. GLUCOSAMINE-CHRONDROTIN [Concomitant]
  14. N-ACETYL-CISTEINE [Concomitant]
  15. VITAMINS [Concomitant]
     Active Substance: VITAMINS
  16. FISH OIL [Concomitant]
     Active Substance: FISH OIL
  17. PRASTERONE [Concomitant]
     Active Substance: PRASTERONE
  18. OPTIMIZED FOLATE [Concomitant]
  19. CALCIUM [Concomitant]
     Active Substance: CALCIUM
  20. MAGNESIUM [Concomitant]
     Active Substance: MAGNESIUM
  21. ZINC [Concomitant]
     Active Substance: ZINC
  22. FLAXSEED OL [Concomitant]

REACTIONS (3)
  - Product taste abnormal [None]
  - Product substitution issue [None]
  - Product quality issue [None]

NARRATIVE: CASE EVENT DATE: 20221222
